FAERS Safety Report 6195916-2 (Version None)
Quarter: 2009Q2

REPORT INFORMATION
  Report Type: 
  Country: None (occurrence: None)
  Receive Date: 20090520
  Receipt Date: 20090513
  Transmission Date: 20091009
  Serious: Yes (Death, Hospitalization, Other)
  Sender: FDA-Public Use
  Company Number: DE-CELGENEUS-062-50794-09021392

PATIENT
  Sex: Female

DRUGS (9)
  1. VIDAZA [Suspect]
     Route: 058
     Dates: start: 20080112, end: 20090120
  2. DEXAMETHASONE 4MG TAB [Concomitant]
     Route: 065
  3. CANDESARTAN [Concomitant]
     Indication: DRUG USE FOR UNKNOWN INDICATION
     Route: 065
  4. PANTOPRAZOLE SODIUM [Concomitant]
     Indication: DRUG USE FOR UNKNOWN INDICATION
     Route: 065
  5. ANASTROZOLE [Concomitant]
     Indication: DRUG USE FOR UNKNOWN INDICATION
     Route: 065
  6. AMLODIPINE [Concomitant]
     Indication: DRUG USE FOR UNKNOWN INDICATION
     Route: 065
  7. TRAMADOL HCL [Concomitant]
     Indication: DRUG USE FOR UNKNOWN INDICATION
     Route: 065
  8. GRANOCYTE [Concomitant]
     Indication: DRUG USE FOR UNKNOWN INDICATION
     Route: 065
  9. ZOFRAN [Concomitant]
     Route: 065

REACTIONS (10)
  - BONE MARROW FAILURE [None]
  - ENTEROCOCCAL INFECTION [None]
  - FEBRILE INFECTION [None]
  - HAEMORRHAGE [None]
  - MULTI-ORGAN FAILURE [None]
  - PERFORMANCE STATUS DECREASED [None]
  - PULMONARY HAEMORRHAGE [None]
  - SEPSIS [None]
  - SUBARACHNOID HAEMORRHAGE [None]
  - THROMBOCYTOPENIA [None]
